FAERS Safety Report 7703483-4 (Version None)
Quarter: 2011Q3

REPORT INFORMATION
  Report Type: 
  Country: None (occurrence: None)
  Receive Date: 20110817
  Receipt Date: 20110809
  Transmission Date: 20111222
  Serious: Yes (Other)
  Sender: FDA-Public Use
  Company Number: 2011SP015546

PATIENT
  Sex: Female

DRUGS (4)
  1. INDERAL [Concomitant]
  2. REMERON [Suspect]
     Indication: DEPRESSION
     Dosage: 15 MG, QD
     Dates: start: 20110311, end: 20110314
  3. ASPIRIN [Concomitant]
  4. TOPAMAX [Concomitant]

REACTIONS (3)
  - DERMATITIS ALLERGIC [None]
  - NAUSEA [None]
  - VOMITING [None]
